FAERS Safety Report 4459543-7 (Version None)
Quarter: 2004Q3

REPORT INFORMATION
  Report Type: 
  Country: None (occurrence: None)
  Receive Date: 20040910
  Receipt Date: 20040514
  Transmission Date: 20050211
  Serious: No
  Sender: FDA-Public Use
  Company Number: 2004214073US

PATIENT
  Age: 80 Year
  Sex: Male
  Weight: 88.4 kg

DRUGS (5)
  1. BEXTRA [Suspect]
     Indication: OSTEOARTHRITIS
     Dosage: 20 MG, QD,
     Dates: start: 20030501, end: 20040501
  2. DETROL [Concomitant]
  3. VIOXX [Concomitant]
  4. MULTIVITAMINS (PANTHENOL, RETINOL, ERGOCALCIFEROL) [Concomitant]
  5. VITAMIN B COMPLEX CAP [Concomitant]

REACTIONS (6)
  - ARTHRITIS [None]
  - CONDITION AGGRAVATED [None]
  - DRUG INEFFECTIVE [None]
  - FATIGUE [None]
  - INCREASED APPETITE [None]
  - MICTURITION URGENCY [None]
